FAERS Safety Report 25749320 (Version 1)
Quarter: 2025Q3

REPORT INFORMATION
  Report Type: Spontaneous
  Country: EU (occurrence: EU)
  Receive Date: 20250902
  Receipt Date: 20250902
  Transmission Date: 20251020
  Serious: Yes (Hospitalization)
  Sender: TAKEDA
  Company Number: EU-TAKEDA-2025TUS063780

PATIENT
  Sex: Female
  Weight: 65 kg

DRUGS (1)
  1. ENTYVIO [Suspect]
     Active Substance: VEDOLIZUMAB
     Indication: Colitis ulcerative

REACTIONS (7)
  - Hypersensitivity [Recovered/Resolved with Sequelae]
  - Benign ovarian tumour [Unknown]
  - Alanine aminotransferase increased [Unknown]
  - Chills [Unknown]
  - Back pain [Recovered/Resolved]
  - Fatigue [Unknown]
  - Product storage error [Unknown]
